FAERS Safety Report 9998150 (Version 1)
Quarter: 2014Q1

REPORT INFORMATION
  Report Type: Spontaneous
  Country: US (occurrence: None)
  Receive Date: 20140304
  Receipt Date: 20140304
  Transmission Date: 20141002
  Serious: Yes (Other)
  Sender: FDA-Public Use
  Company Number: RB-53056-2013

PATIENT
  Sex: Male

DRUGS (3)
  1. SUBUTEX 8 MG [Suspect]
     Indication: DRUG DEPENDENCE
     Route: 064
     Dates: start: 2007, end: 20071128
  2. LORTAB [Suspect]
     Indication: DRUG DEPENDENCE
     Route: 064
     Dates: start: 2007, end: 2007
  3. NICOTINE [Suspect]
     Dosage: 1/2 PACK
     Route: 064
     Dates: start: 2007, end: 20071128

REACTIONS (2)
  - Insomnia [None]
  - Crying [None]
